FAERS Safety Report 5343913-9 (Version None)
Quarter: 2007Q2

REPORT INFORMATION
  Report Type: 
  Country: None (occurrence: None)
  Receive Date: 20070604
  Receipt Date: 20070601
  Transmission Date: 20071010
  Serious: Yes (Other)
  Sender: FDA-Public Use
  Company Number: GB-BRISTOL-MYERS SQUIBB COMPANY-13478607

PATIENT
  Age: 36 Year
  Sex: Male

DRUGS (4)
  1. CISPLATIN [Suspect]
     Indication: TESTIS CANCER
     Route: 042
  2. ETOPOSIDE [Suspect]
     Indication: TESTIS CANCER
     Route: 042
  3. DEXAMETHASONE TAB [Suspect]
     Indication: TESTIS CANCER
     Route: 048
  4. DEXAMETHASONE TAB [Suspect]
     Route: 048

REACTIONS (3)
  - GAIT DISTURBANCE [None]
  - GROIN PAIN [None]
  - OSTEONECROSIS [None]
